FAERS Safety Report 25423311 (Version 3)
Quarter: 2025Q2

REPORT INFORMATION
  Report Type: Spontaneous
  Country: US (occurrence: US)
  Receive Date: 20250611
  Receipt Date: 20250620
  Transmission Date: 20250717
  Serious: Yes (Death)
  Sender: NOVARTIS
  Company Number: US-002147023-NVSC2025US093014

PATIENT
  Sex: Female
  Weight: 76.5 kg

DRUGS (6)
  1. TAFINLAR [Suspect]
     Active Substance: DABRAFENIB MESYLATE
     Indication: Metastases to pleura
     Dosage: 150 MG, Q12H
     Route: 048
     Dates: start: 202409, end: 20250520
  2. TAFINLAR [Suspect]
     Active Substance: DABRAFENIB MESYLATE
     Indication: Malignant neoplasm of eye
     Route: 048
     Dates: start: 20240917, end: 20250520
  3. MEKINIST [Suspect]
     Active Substance: TRAMETINIB DIMETHYL SULFOXIDE
     Indication: Metastases to pleura
     Dosage: 2 MG, QD
     Route: 048
     Dates: start: 20240917, end: 20250520
  4. MEKINIST [Suspect]
     Active Substance: TRAMETINIB DIMETHYL SULFOXIDE
     Indication: Malignant neoplasm of eye
  5. YERVOY [Concomitant]
     Active Substance: IPILIMUMAB
     Indication: Product used for unknown indication
     Route: 065
  6. OPDIVO [Concomitant]
     Active Substance: NIVOLUMAB
     Indication: Product used for unknown indication
     Route: 065

REACTIONS (4)
  - Metastases to pleura [Fatal]
  - Malignant neoplasm of eye [Fatal]
  - Malignant neoplasm progression [Fatal]
  - Off label use [Unknown]
